FAERS Safety Report 6574292-7 (Version None)
Quarter: 2010Q1

REPORT INFORMATION
  Report Type: 
  Country: None (occurrence: None)
  Receive Date: 20100208
  Receipt Date: 20100205
  Transmission Date: 20100710
  Serious: Yes (Death, Hospitalization)
  Sender: FDA-Public Use
  Company Number: GB-ABBOTT-10P-167-0624489-00

PATIENT
  Age: 46 Year
  Sex: Male

DRUGS (13)
  1. RITONAVIR SOFT GELATIN CAPSULES [Suspect]
     Indication: HIV INFECTION
     Route: 048
  2. VALGANCICLOVIR HCL [Concomitant]
     Indication: CYTOMEGALOVIRUS CHORIORETINITIS
  3. TRUVADA [Concomitant]
     Indication: HIV INFECTION
     Route: 048
     Dates: start: 20060718
  4. ENFUVIRTIDE [Concomitant]
     Indication: HIV INFECTION
     Route: 058
     Dates: start: 20060718
  5. FOLIC ACID [Concomitant]
     Indication: MALNUTRITION
     Route: 048
  6. LOPERAMIDE [Concomitant]
     Indication: DIARRHOEA
     Route: 048
  7. BACTRIM [Concomitant]
     Indication: PNEUMOCYSTIS JIROVECI PNEUMONIA
     Route: 048
  8. FERROUS SULFATE TAB [Concomitant]
     Indication: IRON DEFICIENCY
     Route: 048
  9. MULTI-VITAMINS [Concomitant]
     Indication: MALNUTRITION
     Route: 048
  10. OMEPRAZOLE [Concomitant]
     Indication: DRUG USE FOR UNKNOWN INDICATION
  11. DOMPERIDONE [Concomitant]
     Indication: DRUG USE FOR UNKNOWN INDICATION
  12. DARUNAVIR [Concomitant]
     Indication: HIV INFECTION
     Dates: start: 20060718
  13. TMC 125 [Concomitant]
     Indication: HIV INFECTION
     Dates: start: 20060717

REACTIONS (5)
  - DEATH [None]
  - HYPOTENSION [None]
  - NEUTROPENIA [None]
  - RESPIRATORY TRACT INFECTION [None]
  - SEPSIS SYNDROME [None]
